FAERS Safety Report 10038745 (Version 1)
Quarter: 2014Q1

REPORT INFORMATION
  Report Type: Spontaneous
  Country: TW (occurrence: TW)
  Receive Date: 20140326
  Receipt Date: 20140326
  Transmission Date: 20141002
  Serious: Yes (Other)
  Sender: FDA-Public Use
  Company Number: PHHY2014TW032157

PATIENT
  Age: 81 Year
  Sex: Female

DRUGS (7)
  1. OXACILLIN [Suspect]
     Indication: STAPHYLOCOCCAL BACTERAEMIA
     Dosage: 2 G, Q4H
     Route: 042
  2. CEFAZOLIN [Suspect]
     Indication: STAPHYLOCOCCAL BACTERAEMIA
     Dosage: 2 G, Q8H
     Route: 042
  3. AMOXICILLIN + CLAVULANATE POTASSIUM [Suspect]
     Indication: BACTERAEMIA
     Route: 042
  4. VANCOMYCIN [Suspect]
     Indication: BACTERAEMIA
  5. DOXYCYCLINE [Suspect]
     Indication: BACTERAEMIA
     Route: 048
  6. LEVOFLOXACIN [Suspect]
     Dosage: 500 MG, QD
     Route: 048
  7. ASPIRIN [Concomitant]

REACTIONS (6)
  - Cardiac tamponade [Recovered/Resolved]
  - Pericarditis [Recovered/Resolved]
  - Pericardial effusion [Recovered/Resolved]
  - Staphylococcal bacteraemia [Unknown]
  - Dyspnoea [Unknown]
  - Infusion site phlebitis [Unknown]
